FAERS Safety Report 12227486 (Version 4)
Quarter: 2016Q2

REPORT INFORMATION
  Report Type: Report from Study
  Country: MX (occurrence: MX)
  Receive Date: 20160331
  Receipt Date: 20160610
  Transmission Date: 20160815
  Serious: Yes (Death, Other)
  Sender: FDA-Public Use
  Company Number: MX-AMGEN-MEXSL2016030200

PATIENT
  Age: 44 Year
  Sex: Male
  Weight: 62 kg

DRUGS (7)
  1. PLACIL [Concomitant]
     Dosage: UNK
  2. RIVOTRIL [Concomitant]
     Active Substance: CLONAZEPAM
     Dosage: UNK
  3. EFEROX [Concomitant]
     Active Substance: LEVOTHYROXINE SODIUM
     Dosage: UNK
  4. CONTUMAX                           /00362801/ [Concomitant]
     Dosage: UNK
  5. UNIVAL                             /00434701/ [Concomitant]
     Dosage: UNK
  6. IMMUNOCAL PLATINUM [Concomitant]
     Dosage: UNK
  7. BLINCYTO [Suspect]
     Active Substance: BLINATUMOMAB
     Indication: ACUTE LYMPHOCYTIC LEUKAEMIA
     Dosage: 5 ML, Q4WK (EVERY 28 DAYS)
     Route: 058
     Dates: start: 20160225, end: 20160324

REACTIONS (17)
  - Blast cells present [Unknown]
  - Confusional state [Unknown]
  - Rash erythematous [Unknown]
  - Pain in extremity [Unknown]
  - Tremor [Recovered/Resolved]
  - Hypotension [Recovered/Resolved]
  - Sepsis [Fatal]
  - Dyspnoea [Unknown]
  - Dysstasia [Unknown]
  - Painful defaecation [Unknown]
  - Anal haemorrhage [Unknown]
  - Anxiety [Unknown]
  - Tachycardia [Recovered/Resolved]
  - Facial paralysis [Unknown]
  - Blood lactate dehydrogenase increased [Unknown]
  - Bowel movement irregularity [Unknown]
  - Pyrexia [Unknown]

NARRATIVE: CASE EVENT DATE: 20160228
